FAERS Safety Report 8852942 (Version 1)
Quarter: 2012Q4

REPORT INFORMATION
  Report Type: Report from Study
  Country: CA (occurrence: CA)
  Receive Date: 20121022
  Receipt Date: 20121022
  Transmission Date: 20130627
  Serious: Yes (Other)
  Sender: FDA-Public Use
  Company Number: CA-ABBOTT-12P-028-0995388-00

PATIENT
  Sex: Female
  Weight: 62.65 kg

DRUGS (7)
  1. HUMIRA [Suspect]
     Indication: RHEUMATOID ARTHRITIS
     Route: 058
     Dates: start: 20090325, end: 201208
  2. VALSARTAN [Concomitant]
     Indication: HYPERTENSION
     Route: 048
     Dates: start: 2004
  3. OMEPRAZOLE SANDOZ [Concomitant]
     Indication: GASTROOESOPHAGEAL REFLUX DISEASE
     Dates: start: 2009
  4. METHOTREXATE [Concomitant]
     Indication: RHEUMATOID ARTHRITIS
     Route: 048
     Dates: start: 201209
  5. FOLIC ACID [Concomitant]
     Indication: PRODUCT USED FOR UNKNOWN INDICATION
     Route: 048
     Dates: start: 201209
  6. VITAMIN B12 [Concomitant]
     Indication: ANAEMIA
     Dates: start: 1998
  7. MULTIVITAMIN [Concomitant]
     Indication: PRODUCT USED FOR UNKNOWN INDICATION
     Route: 048

REACTIONS (7)
  - Joint injury [Recovered/Resolved]
  - Bone erosion [Unknown]
  - Bone erosion [Recovered/Resolved]
  - Arthralgia [Recovered/Resolved]
  - Cyst [Recovered/Resolved]
  - Pilonidal cyst [Recovered/Resolved]
  - Genital cyst [Recovered/Resolved]
